FAERS Safety Report 20750802 (Version 1)
Quarter: 2022Q2

REPORT INFORMATION
  Report Type: Spontaneous
  Country: CN (occurrence: CN)
  Receive Date: 20220426
  Receipt Date: 20220426
  Transmission Date: 20220720
  Serious: Yes (Other)
  Sender: FDA-Public Use
  Company Number: CN-OTSUKA-2022_024571

PATIENT
  Age: 65 Year
  Sex: Male

DRUGS (1)
  1. SAMSCA [Suspect]
     Active Substance: TOLVAPTAN
     Indication: Product used for unknown indication
     Dosage: 15 MG, QD
     Route: 048
     Dates: start: 20220322, end: 20220322

REACTIONS (2)
  - Blood chloride increased [Recovering/Resolving]
  - Blood sodium increased [Recovering/Resolving]

NARRATIVE: CASE EVENT DATE: 20220323
